FAERS Safety Report 17743322 (Version 2)
Quarter: 2020Q2

REPORT INFORMATION
  Report Type: Spontaneous
  Country: US (occurrence: US)
  Receive Date: 20200505
  Receipt Date: 20200511
  Transmission Date: 20200714
  Serious: Yes (Other)
  Sender: FDA-Public Use
  Company Number: US-RECKITT BENCKISER HEALTHCARE INT LIMITED-RB-86060-2020

PATIENT
  Age: 81 Year
  Sex: Male

DRUGS (2)
  1. MUCINEX [Suspect]
     Active Substance: GUAIFENESIN
     Indication: PRODUCT USED FOR UNKNOWN INDICATION
     Dosage: 1200 MILLIGRAM AT AN UNKNOWN FREQUENCY (IN EVENING)
     Route: 065
     Dates: start: 20200424
  2. MUCINEX [Suspect]
     Active Substance: GUAIFENESIN
     Dosage: 600 MILLIGRAM, TID, FIVE TABLETS IN TOTAL
     Route: 065
     Dates: start: 20200425

REACTIONS (5)
  - Dizziness [Recovering/Resolving]
  - Inappropriate schedule of product administration [Recovering/Resolving]
  - Dyspnoea [Recovering/Resolving]
  - Contraindicated product administered [Recovering/Resolving]
  - Pulmonary oedema [Recovering/Resolving]

NARRATIVE: CASE EVENT DATE: 202004
